FAERS Safety Report 4726857-2 (Version None)
Quarter: 2005Q3

REPORT INFORMATION
  Report Type: 
  Country: None (occurrence: None)
  Receive Date: 20050726
  Receipt Date: 20050715
  Transmission Date: 20060218
  Serious: Yes (Hospitalization)
  Sender: FDA-Public Use
  Company Number: HQWYE228715JUL05

PATIENT
  Sex: Male

DRUGS (1)
  1. PANTOLOC (PANTOPRAZOLE, TABLE, DELAYED RELEASE) [Suspect]
     Indication: GASTROOESOPHAGEAL REFLUX DISEASE
     Dosage: 40 MG 1X PER 1 DAY ORAL
     Route: 048
     Dates: start: 20050606, end: 20050608

REACTIONS (1)
  - DIVERTICULITIS [None]
